FAERS Safety Report 9882177 (Version 3)
Quarter: 2014Q2

REPORT INFORMATION
  Report Type: Report from Study
  Country: AU (occurrence: AU)
  Receive Date: 20140207
  Receipt Date: 20140611
  Transmission Date: 20141212
  Serious: Yes (Death, Other)
  Sender: FDA-Public Use
  Company Number: PHHY2014AU015405

PATIENT
  Age: 78 Year
  Sex: Male

DRUGS (8)
  1. ACLASTA [Suspect]
     Indication: OSTEOPOROSIS
     Dosage: 5 MG, UNK
     Route: 042
     Dates: start: 20110212
  2. ACLASTA [Suspect]
     Dosage: 5 MG, UNK
     Route: 042
     Dates: start: 20120221
  3. ACLASTA [Suspect]
     Dosage: 5 MG, UNK
     Route: 042
     Dates: start: 20130218
  4. RAMIPRIL [Concomitant]
     Indication: HYPERTENSION
     Dosage: 5 MG, ONCE/SINGLE
     Route: 048
     Dates: start: 2006
  5. ATENOLOL [Concomitant]
     Indication: HYPERTENSION
     Dosage: 25 MG, ONCE/SINGLE
     Route: 048
  6. TOCORA [Concomitant]
     Indication: BLOOD CHOLESTEROL ABNORMAL
     Dosage: 40 MG, ONCE/SINGLE
     Route: 048
     Dates: start: 2006
  7. COUMADIN//COUMARIN [Concomitant]
     Indication: ATRIAL FIBRILLATION
     Dosage: UNK
  8. WARFARIN [Concomitant]
     Indication: ATRIAL FIBRILLATION
     Dosage: UNK
     Route: 048
     Dates: start: 2006

REACTIONS (4)
  - Death [Fatal]
  - Intestinal ischaemia [Fatal]
  - Sepsis [Fatal]
  - Circulatory collapse [Fatal]
